FAERS Safety Report 6509955-2 (Version None)
Quarter: 2009Q4

REPORT INFORMATION
  Report Type: 
  Country: None (occurrence: None)
  Receive Date: 20091222
  Receipt Date: 20091217
  Transmission Date: 20100525
  Serious: Yes (Death, Other)
  Sender: FDA-Public Use
  Company Number: PHHY2009FR11283

PATIENT
  Sex: Male

DRUGS (2)
  1. ZOLEDRONATE [Suspect]
     Indication: HYPERCALCAEMIA
     Dosage: 4 MG EVERY 3 WEEKS
     Route: 042
  2. SUTENT [Suspect]
     Indication: RENAL CELL CARCINOMA
     Dosage: FOR 14 MONTHS

REACTIONS (3)
  - DEATH [None]
  - OSTEONECROSIS [None]
  - TOOTH EXTRACTION [None]
